FAERS Safety Report 10254557 (Version 1)
Quarter: 2014Q2

REPORT INFORMATION
  Report Type: Spontaneous
  Country: AT (occurrence: AT)
  Receive Date: 20140624
  Receipt Date: 20140624
  Transmission Date: 20141212
  Serious: Yes (Hospitalization)
  Sender: FDA-Public Use
  Company Number: AT-ROCHE-1423485

PATIENT
  Sex: Female

DRUGS (9)
  1. MABTHERA [Suspect]
     Indication: RHEUMATOID ARTHRITIS
     Route: 042
  2. BONVIVA [Concomitant]
  3. CONCOR [Concomitant]
  4. SAROTEN [Concomitant]
  5. FEMARA [Concomitant]
  6. IXEL [Concomitant]
  7. OMEC [Concomitant]
  8. SIMVASTATIN [Concomitant]
  9. DEFLAMAT [Concomitant]

REACTIONS (1)
  - Intervertebral disc protrusion [Not Recovered/Not Resolved]
